FAERS Safety Report 5141131-0 (Version None)
Quarter: 2006Q4

REPORT INFORMATION
  Report Type: 
  Country: None (occurrence: None)
  Receive Date: 20061026
  Receipt Date: 20061023
  Transmission Date: 20070319
  Serious: Yes (Life-Threatening)
  Sender: FDA-Public Use
  Company Number: 2006S1000212

PATIENT
  Age: 2 Day
  Sex: Female

DRUGS (14)
  1. NITRIC OXIDE [Suspect]
     Indication: LUNG DISORDER
     Dosage: 5 PPM; INH_GAS; INH; CONT INH
     Route: 055
     Dates: start: 20061021
  2. NITRIC OXIDE [Suspect]
     Indication: PROPHYLAXIS
     Dosage: 5 PPM; INH_GAS; INH; CONT INH
     Route: 055
     Dates: start: 20061021
  3. NITRIC OXIDE [Suspect]
     Indication: LUNG DISORDER
     Dosage: 5 PPM; INH_GAS; INH; CONT INH
     Route: 055
     Dates: start: 20061021
  4. NITRIC OXIDE [Suspect]
     Indication: PROPHYLAXIS
     Dosage: 5 PPM; INH_GAS; INH; CONT INH
     Route: 055
     Dates: start: 20061021
  5. DOPAMINE HCL [Concomitant]
  6. DOBUTAMINE (DOBUTAMINE) [Concomitant]
  7. FENTANYL [Concomitant]
  8. AMPICILLIN [Concomitant]
  9. AMIKACIN [Concomitant]
  10. PLASMA [Concomitant]
  11. RED BLOOD CELLS [Concomitant]
  12. FUROSEMIDE [Concomitant]
  13. DOPAMINE HCL [Concomitant]
  14. FENTANYL [Concomitant]

REACTIONS (4)
  - INTRAVENTRICULAR HAEMORRHAGE NEONATAL [None]
  - NEONATAL RESPIRATORY DISTRESS SYNDROME [None]
  - PATENT DUCTUS ARTERIOSUS [None]
  - PULMONARY HAEMORRHAGE [None]
